FAERS Safety Report 8933603 (Version 2)
Quarter: 2013Q1

REPORT INFORMATION
  Report Type: Spontaneous
  Country: US (occurrence: US)
  Receive Date: 20121129
  Receipt Date: 20130131
  Transmission Date: 20140127
  Serious: Yes (Other)
  Sender: FDA-Public Use
  Company Number: US-PFIZER INC-2012297881

PATIENT
  Age: 67 Year
  Sex: Female
  Weight: 88.4 kg

DRUGS (4)
  1. CELEBREX [Suspect]
     Indication: ARTHRITIS
     Dosage: 200 MG, 2X/DAY
     Dates: start: 1986
  2. LORTAB [Concomitant]
     Indication: PAIN
     Dosage: 5 MG, AS NEEDED
  3. QUINAPRIL [Concomitant]
     Dosage: 20 MG, 2X/DAY
  4. METFORMIN [Concomitant]
     Dosage: 500 MG, 2X/DAY

REACTIONS (3)
  - Diabetes mellitus [Unknown]
  - Osteoarthritis [Unknown]
  - Blood glucose increased [Unknown]
